FAERS Safety Report 6313432-1 (Version None)
Quarter: 2009Q3

REPORT INFORMATION
  Report Type: 
  Country: None (occurrence: None)
  Receive Date: 20090814
  Receipt Date: 20090814
  Transmission Date: 20100115
  Serious: Yes (Disabling)
  Sender: FDA-Public Use
  Company Number: None

PATIENT
  Sex: Male
  Weight: 58.9676 kg

DRUGS (4)
  1. RISPERDAL [Suspect]
     Indication: AUTISM
     Dosage: 4.5 MG DAILY
     Dates: start: 20050317, end: 20090813
  2. RISPERDAL [Suspect]
     Indication: EPILEPSY
     Dosage: 4.5 MG DAILY
     Dates: start: 20050317, end: 20090813
  3. RISPERDAL [Suspect]
     Indication: OBSESSIVE-COMPULSIVE DISORDER
     Dosage: 4.5 MG DAILY
     Dates: start: 20050317, end: 20090813
  4. RISPERIDONE [Suspect]

REACTIONS (3)
  - AGGRESSION [None]
  - BLOOD PROLACTIN INCREASED [None]
  - BREAST DISORDER MALE [None]
